FAERS Safety Report 10249678 (Version 1)
Quarter: 2014Q2

REPORT INFORMATION
  Report Type: Spontaneous
  Country: GB (occurrence: GB)
  Receive Date: 20140620
  Receipt Date: 20140620
  Transmission Date: 20141212
  Serious: Yes (Other)
  Sender: FDA-Public Use
  Company Number: GB-ASTELLAS-2014EU005561

PATIENT
  Age: 56 Year
  Sex: Male

DRUGS (1)
  1. VESICARE [Suspect]
     Indication: PROSTATECTOMY
     Dosage: UNK UNK, UNKNOWN FREQ.
     Route: 065
     Dates: start: 20140508

REACTIONS (2)
  - Haematemesis [Unknown]
  - Vision blurred [Unknown]
